FAERS Safety Report 23832526 (Version 1)
Quarter: 2024Q2

REPORT INFORMATION
  Report Type: Spontaneous
  Country: US (occurrence: US)
  Receive Date: 20240508
  Receipt Date: 20240508
  Transmission Date: 20240716
  Serious: No
  Sender: FDA-Public Use
  Company Number: US-SA-SAC20240429001111

PATIENT
  Sex: Male
  Weight: 107 kg

DRUGS (1)
  1. DUPIXENT [Suspect]
     Active Substance: DUPILUMAB
     Indication: Asthma
     Dosage: 300MG;EVERY OTHER WEEK
     Route: 058
     Dates: start: 20190219

REACTIONS (2)
  - Asthma [Unknown]
  - Product dose omission issue [Unknown]
